FAERS Safety Report 4586443-4 (Version None)
Quarter: 2005Q1

REPORT INFORMATION
  Report Type: 
  Country: None (occurrence: None)
  Receive Date: 20050218
  Receipt Date: 20050208
  Transmission Date: 20050727
  Serious: Yes (Hospitalization, Other)
  Sender: FDA-Public Use
  Company Number: JP-JNJFOC-20050102776

PATIENT
  Sex: Female
  Weight: 58 kg

DRUGS (17)
  1. REMICADE [Suspect]
  2. REMICADE [Suspect]
  3. REMICADE [Suspect]
     Indication: RHEUMATOID ARTHRITIS
  4. RHEUMATREX [Suspect]
     Indication: RHEUMATOID ARTHRITIS
     Route: 049
  5. PREDNISOLONE [Suspect]
     Indication: RHEUMATOID ARTHRITIS
     Route: 049
  6. MOBIC [Concomitant]
     Indication: RHEUMATOID ARTHRITIS
     Route: 049
  7. VOLTAREN [Concomitant]
     Indication: RHEUMATOID ARTHRITIS
     Route: 049
  8. ADOFEED [Concomitant]
     Indication: RHEUMATOID ARTHRITIS
  9. BONALON [Concomitant]
     Route: 049
  10. TAKEPRON [Concomitant]
     Route: 049
  11. CYTOTEC [Concomitant]
     Route: 049
  12. SERENAL [Concomitant]
     Route: 049
  13. CONIEL [Concomitant]
     Route: 049
  14. PENFILL R [Concomitant]
     Dosage: 25 UNITS DAILY
     Route: 058
  15. PENFILL 30R [Concomitant]
     Dosage: 10 UNITS DAILY
     Route: 058
  16. INH [Concomitant]
     Indication: TUBERCULOSIS PROPHYLAXIS
  17. KETOPROFEN [Concomitant]
     Dosage: ^10X14^ EXTERNALLY PRN

REACTIONS (2)
  - HERPES SIMPLEX [None]
  - PYELONEPHRITIS [None]
